FAERS Safety Report 8841372 (Version 1)
Quarter: 2012Q4

REPORT INFORMATION
  Report Type: 
  Country: US (occurrence: US)
  Receive Date: 20121015
  Receipt Date: 20121015
  Transmission Date: 20130627
  Serious: No
  Sender: FDA-Public Use
  Company Number: US-BAYER-2012-107292

PATIENT

DRUGS (5)
  1. ALEVE CAPLET/TABLET,MIDOL EXTENDED RELIEF CAPLET [Suspect]
  2. IBUPROFEN [Concomitant]
  3. TYLENOL NOS [Concomitant]
  4. HYDROS [Concomitant]
  5. MORPHINE [Concomitant]

REACTIONS (1)
  - Drug ineffective [None]
